FAERS Safety Report 16368750 (Version 1)
Quarter: 2019Q2

REPORT INFORMATION
  Report Type: Spontaneous
  Country: NL (occurrence: NL)
  Receive Date: 20190529
  Receipt Date: 20190529
  Transmission Date: 20190711
  Serious: Yes (Hospitalization)
  Sender: FDA-Public Use
  Company Number: NL-MYLANLABS-2019M1049847

PATIENT
  Age: 74 Year
  Sex: Male
  Weight: 71 kg

DRUGS (14)
  1. SIMVASTATINE [Concomitant]
     Active Substance: SIMVASTATIN
     Dosage: 1 DD 1
  2. PACLITAXEL. [Concomitant]
     Active Substance: PACLITAXEL
     Dosage: UNK(HALF SEPTEMBER HEEFT DE LAATSTE CHEMOTHERAPIE GEHAD (PACLITAXEL/RAMUCIRUMAB)
     Dates: end: 201809
  3. LOPERAMIDE [Concomitant]
     Active Substance: LOPERAMIDE
     Dosage: ZN
  4. METOCLOPRAMIDE. [Concomitant]
     Active Substance: METOCLOPRAMIDE
     Dosage: 10MG ZN
  5. PLAVIX [Concomitant]
     Active Substance: CLOPIDOGREL BISULFATE
     Dosage: 1 DD 1
  6. PCM [Concomitant]
     Dosage: 3-4DD1
  7. TRASTUZUMAB MYLAN [Suspect]
     Active Substance: TRASTUZUMAB
     Indication: OESOPHAGEAL CANCER METASTATIC
     Dosage: 8 MG/KG, OPGELOST IN 250 ML NACL 0,9%, MAXIMUMSNELHEID VAN 25 MG/MINUUT
     Route: 042
     Dates: start: 20180320
  8. OMEPRAZOL                          /00661201/ [Concomitant]
     Active Substance: OMEPRAZOLE
     Dosage: 40 MILLIGRAM, QD (1 DD 1)
  9. CISPLATINE [Concomitant]
     Active Substance: CISPLATIN
     Dosage: UNK (CISPLATINE (6X)
  10. CAPECITABINE. [Concomitant]
     Active Substance: CAPECITABINE
     Dosage: CAPACITEBINE 1650MG 2DD
  11. RAMUCIRUMAB [Concomitant]
     Active Substance: RAMUCIRUMAB
     Dosage: HALF SEPTEMBER HEEFT DE LAATSTE CHEMOTHERAPIE GEHAD (PACLITAXEL/RAMUCIRUMAB).
     Dates: end: 201809
  12. DYMISTA [Concomitant]
     Active Substance: AZELASTINE HYDROCHLORIDE\FLUTICASONE PROPIONATE
     Dosage: 1 DOSAGE FORM ,2 DD (12 MIN)
  13. HYDROCHLOORTHIAZIDE [Concomitant]
     Active Substance: HYDROCHLOROTHIAZIDE
     Dosage: 1 DD 1
  14. SUCRALFAAT [Concomitant]
     Dosage: 4DD 1GR

REACTIONS (4)
  - Cardiac failure [Not Recovered/Not Resolved]
  - Sputum increased [Not Recovered/Not Resolved]
  - Dyspnoea [Not Recovered/Not Resolved]
  - Cardiomyopathy [Not Recovered/Not Resolved]

NARRATIVE: CASE EVENT DATE: 201809
